FAERS Safety Report 6787612-5 (Version None)
Quarter: 2010Q2

REPORT INFORMATION
  Report Type: 
  Country: None (occurrence: None)
  Receive Date: 20100623
  Receipt Date: 20050721
  Transmission Date: 20101027
  Serious: No
  Sender: FDA-Public Use
  Company Number: US-PFIZER INC-2007058327

PATIENT
  Sex: Female

DRUGS (1)
  1. PROVERA [Suspect]
     Indication: MENSTRUATION DELAYED
     Dates: start: 20050620, end: 20050621

REACTIONS (1)
  - FALSE NEGATIVE PREGNANCY TEST [None]
